FAERS Safety Report 8688114 (Version 5)
Quarter: 2012Q4

REPORT INFORMATION
  Report Type: 
  Country: US (occurrence: US)
  Receive Date: 20120727
  Receipt Date: 20121231
  Transmission Date: 20130627
  Serious: Yes (Hospitalization, Other)
  Sender: FDA-Public Use
  Company Number: US-009507513-2012SP017141

PATIENT

DRUGS (5)
  1. NUVARING [Suspect]
     Indication: CONTRACEPTION
     Dosage: UNK
     Dates: start: 20060525, end: 20060825
  2. NUVARING [Suspect]
     Dosage: UNK
     Dates: start: 20090506, end: 20100428
  3. CATAPRES [Concomitant]
     Dosage: UNK
     Dates: start: 1996
  4. NORVASC [Concomitant]
     Dosage: UNK
     Dates: start: 1996
  5. COUMADIN [Suspect]
     Indication: PULMONARY EMBOLISM
     Dosage: UNK
     Dates: start: 20100428

REACTIONS (46)
  - Acute respiratory failure [Unknown]
  - Pulmonary embolism [Unknown]
  - Ovarian cyst [Unknown]
  - Hypertension [Unknown]
  - Pneumonia [Unknown]
  - Depression [Unknown]
  - Anxiety [Unknown]
  - Personality disorder [Unknown]
  - Cor pulmonale [Unknown]
  - Tricuspid valve incompetence [Unknown]
  - Dyspnoea [Unknown]
  - Chest pain [Unknown]
  - Headache [Unknown]
  - Blood cholesterol increased [Unknown]
  - Sleep apnoea syndrome [Unknown]
  - Sleep paralysis [Unknown]
  - Migraine [Unknown]
  - Radiculopathy [Unknown]
  - Gastrooesophageal reflux disease [Unknown]
  - Diabetes mellitus [Unknown]
  - Hypertension [Unknown]
  - Chronic obstructive pulmonary disease [Unknown]
  - Obesity [Unknown]
  - Insomnia [Unknown]
  - Adverse drug reaction [Unknown]
  - Gastroenteritis [Unknown]
  - Menorrhagia [Unknown]
  - Endocervical curettage [Unknown]
  - Uterine dilation and curettage [Unknown]
  - Uterine leiomyoma [Unknown]
  - Endometrial ablation [Unknown]
  - Intervertebral disc degeneration [Unknown]
  - Urinary tract infection [Unknown]
  - Cholelithiasis [Unknown]
  - Sarcoidosis [Unknown]
  - Asthma [Unknown]
  - Fibromyalgia [Unknown]
  - Osteoporosis [Unknown]
  - Cardiac neoplasm unspecified [Recovered/Resolved]
  - Peptic ulcer [Unknown]
  - Hernia repair [Unknown]
  - Biopsy lung [Unknown]
  - Multiple allergies [Unknown]
  - Pulmonary embolism [Unknown]
  - Attention deficit/hyperactivity disorder [Unknown]
  - Lobar pneumonia [Unknown]
